FAERS Safety Report 21312041 (Version 1)
Quarter: 2022Q3

REPORT INFORMATION
  Report Type: Spontaneous
  Country: US (occurrence: None)
  Receive Date: 20220909
  Receipt Date: 20220909
  Transmission Date: 20221026
  Serious: No
  Sender: FDA-Public Use
  Company Number: US-ARIS GLOBAL-202204-0577

PATIENT
  Sex: Female

DRUGS (13)
  1. OXERVATE [Suspect]
     Active Substance: CENEGERMIN-BKBJ
     Indication: Neurotrophic keratopathy
     Route: 047
     Dates: start: 20220322
  2. LUMIGAN [Concomitant]
     Active Substance: BIMATOPROST
  3. XIIDRA [Concomitant]
     Active Substance: LIFITEGRAST
  4. VITAMIN A AND D [Concomitant]
     Active Substance: LANOLIN\PETROLATUM
  5. CHONDROITIN SULFATE (BOVINE)\GLUCOSAMINE SULFATE [Concomitant]
     Active Substance: CHONDROITIN SULFATE (BOVINE)\GLUCOSAMINE SULFATE
  6. MAGNESIUM [Concomitant]
     Active Substance: MAGNESIUM
  7. SKIN AND NAILS [Concomitant]
  8. CRANBERRY [Concomitant]
     Active Substance: CRANBERRY
  9. VITAMINS [Concomitant]
     Active Substance: VITAMINS
  10. CALCIUM [Concomitant]
     Active Substance: CALCIUM
  11. METOPROLOL TARTRATE [Concomitant]
     Active Substance: METOPROLOL TARTRATE
  12. IRON [Concomitant]
     Active Substance: IRON
     Dosage: 325(65) MG
  13. LECITHIN [Concomitant]
     Active Substance: LECITHIN

REACTIONS (1)
  - Eye pain [Unknown]
